FAERS Safety Report 8973686 (Version 1)
Quarter: 2012Q4

REPORT INFORMATION
  Report Type: 
  Country: BR (occurrence: BR)
  Receive Date: 20121211
  Receipt Date: 20121211
  Transmission Date: 20130627
  Serious: Yes (Other)
  Sender: FDA-Public Use
  Company Number: BR-PFIZER INC-2012307546

PATIENT
  Sex: Male

DRUGS (1)
  1. DETRUSITOL LA [Suspect]
     Dosage: 4 mg, UNK

REACTIONS (3)
  - Inhibitory drug interaction [Unknown]
  - Tremor [Unknown]
  - Muscle rigidity [Unknown]
